FAERS Safety Report 24847864 (Version 1)
Quarter: 2025Q1

REPORT INFORMATION
  Report Type: Spontaneous
  Country: CN (occurrence: CN)
  Receive Date: 20250116
  Receipt Date: 20250116
  Transmission Date: 20250409
  Serious: Yes (Hospitalization)
  Sender: NOVITIUM PHARMA
  Company Number: CN-NOVITIUMPHARMA-2025CNNVP00063

PATIENT
  Age: 67 Year
  Sex: Male

DRUGS (10)
  1. LEVOFLOXACIN [Suspect]
     Active Substance: LEVOFLOXACIN
     Indication: Urinary tract infection
     Dates: start: 202308
  2. MECAPEGFILGRASTIM [Concomitant]
     Active Substance: MECAPEGFILGRASTIM
     Indication: Product used for unknown indication
  3. SODIUM CHLORIDE [Concomitant]
     Active Substance: SODIUM CHLORIDE
     Indication: Product used for unknown indication
     Dates: start: 202308
  4. SINTILIMAB [Concomitant]
     Active Substance: SINTILIMAB
     Indication: Oesophageal carcinoma
     Route: 042
     Dates: start: 202308, end: 2023
  5. SINTILIMAB [Concomitant]
     Active Substance: SINTILIMAB
     Route: 042
     Dates: start: 202211, end: 2023
  6. SINTILIMAB [Concomitant]
     Active Substance: SINTILIMAB
     Route: 042
     Dates: start: 20230726, end: 2023
  7. PACLITAXEL [Concomitant]
     Active Substance: PACLITAXEL
     Indication: Oesophageal carcinoma
     Route: 042
     Dates: start: 202211, end: 2023
  8. PACLITAXEL [Concomitant]
     Active Substance: PACLITAXEL
     Route: 042
     Dates: start: 202211, end: 2023
  9. NEDAPLATIN [Concomitant]
     Active Substance: NEDAPLATIN
     Indication: Oesophageal carcinoma
     Route: 042
     Dates: start: 202211, end: 2023
  10. NEDAPLATIN [Concomitant]
     Active Substance: NEDAPLATIN
     Route: 042
     Dates: start: 202211, end: 2023

REACTIONS (1)
  - Intentional product misuse [Unknown]
